FAERS Safety Report 13163259 (Version 1)
Quarter: 2017Q1

REPORT INFORMATION
  Report Type: Spontaneous
  Country: US (occurrence: US)
  Receive Date: 20170125
  Receipt Date: 20170125
  Transmission Date: 20170428
  Serious: Yes (Disabling)
  Sender: FDA-Public Use
  Company Number: None

PATIENT
  Age: 15 Year
  Sex: Female
  Weight: 51.75 kg

DRUGS (1)
  1. BUPROPION HYDROCHLORIDE XL [Suspect]
     Active Substance: BUPROPION HYDROCHLORIDE
     Indication: MAJOR DEPRESSION
     Dosage: ?          QUANTITY:30 TABLET(S);?
     Route: 048
     Dates: start: 20170123, end: 20170124

REACTIONS (9)
  - Fatigue [None]
  - Product substitution issue [None]
  - Crying [None]
  - Dizziness [None]
  - Headache [None]
  - Hyperhidrosis [None]
  - Photopsia [None]
  - Disturbance in attention [None]
  - Emotional disorder [None]

NARRATIVE: CASE EVENT DATE: 20170123
